FAERS Safety Report 14007496 (Version 8)
Quarter: 2022Q1

REPORT INFORMATION
  Report Type: Spontaneous
  Country: US (occurrence: US)
  Receive Date: 20170925
  Receipt Date: 20220117
  Transmission Date: 20220423
  Serious: Yes (Other)
  Sender: FDA-Public Use
  Company Number: US-PFIZER INC-2017409778

PATIENT
  Age: 44 Year
  Sex: Male
  Weight: 88.5 kg

DRUGS (5)
  1. RAPAMUNE [Suspect]
     Active Substance: SIROLIMUS
     Indication: Prophylaxis against transplant rejection
     Dosage: 5 MG, 1X/DAY (5 TABLETS ONCE A DAY TO EQUAL THE 5 MG DOSE)
     Route: 048
     Dates: start: 2000
  2. RAPAMUNE [Suspect]
     Active Substance: SIROLIMUS
     Dosage: EITHER 3 OR 4, DAILY
     Route: 048
  3. RAPAMUNE [Suspect]
     Active Substance: SIROLIMUS
     Dosage: 5 MG, 1X/DAY (5 TABLETS BY MOUTH DAILY AT 9:30 IN THE MORNING)
     Route: 048
     Dates: start: 2018
  4. RAPAMUNE [Suspect]
     Active Substance: SIROLIMUS
     Dosage: 1 MG, 5 TIMES DAILY
  5. RAPAMUNE [Suspect]
     Active Substance: SIROLIMUS
     Dosage: 5 MG, DAILY
     Route: 048

REACTIONS (11)
  - Drug dependence [Unknown]
  - Anxiety [Not Recovered/Not Resolved]
  - Weight decreased [Unknown]
  - Insomnia [Unknown]
  - Stress [Unknown]
  - Renal disorder [Unknown]
  - Blood glucose increased [Unknown]
  - Hepatic enzyme abnormal [Unknown]
  - Off label use [Unknown]
  - Intentional product misuse [Unknown]
  - Product prescribing error [Unknown]

NARRATIVE: CASE EVENT DATE: 20000101
